FAERS Safety Report 11297060 (Version 1)
Quarter: 2015Q3

REPORT INFORMATION
  Report Type: Spontaneous
  Country: US (occurrence: US)
  Receive Date: 20150722
  Receipt Date: 20150722
  Transmission Date: 20151125
  Serious: Yes (Hospitalization, Other)
  Sender: FDA-Public Use
  Company Number: US-ELI_LILLY_AND_COMPANY-US201011006183

PATIENT
  Age: 63 Year
  Sex: Male

DRUGS (3)
  1. BIVALIRUDIN. [Concomitant]
     Active Substance: BIVALIRUDIN
     Dosage: DURING CATHETERIZATION
     Route: 065
  2. EFFIENT [Suspect]
     Active Substance: PRASUGREL HYDROCHLORIDE
     Indication: CARDIAC DISORDER
     Dosage: 60 MG LOADING DOSE
     Route: 065
     Dates: start: 20101117, end: 20101117
  3. EFFIENT [Suspect]
     Active Substance: PRASUGREL HYDROCHLORIDE
     Dosage: 10 MG, UNK
     Dates: start: 20101119

REACTIONS (3)
  - Vessel puncture site haematoma [Recovering/Resolving]
  - Venous haemorrhage [Recovering/Resolving]
  - Haemorrhage [Unknown]

NARRATIVE: CASE EVENT DATE: 20101117
